FAERS Safety Report 24465640 (Version 1)
Quarter: 2024Q4

REPORT INFORMATION
  Report Type: Spontaneous
  Country: US (occurrence: US)
  Receive Date: 20241018
  Receipt Date: 20241018
  Transmission Date: 20250114
  Serious: No
  Sender: ROCHE
  Company Number: US-ROCHE-3515991

PATIENT
  Age: 76 Year
  Sex: Female

DRUGS (1)
  1. XOLAIR [Suspect]
     Active Substance: OMALIZUMAB
     Indication: Chronic spontaneous urticaria
     Route: 058

REACTIONS (4)
  - Headache [Not Recovered/Not Resolved]
  - Vertigo [Not Recovered/Not Resolved]
  - Pyrexia [Unknown]
  - Chills [Unknown]

NARRATIVE: CASE EVENT DATE: 20240222
